FAERS Safety Report 10612427 (Version 2)
Quarter: 2015Q2

REPORT INFORMATION
  Report Type: Spontaneous
  Country: US (occurrence: US)
  Receive Date: 20141127
  Receipt Date: 20150417
  Transmission Date: 20150821
  Serious: Yes (Other)
  Sender: FDA-Public Use
  Company Number: US-AMGEN-USASL2014091641

PATIENT
  Age: 93 Year
  Sex: Male

DRUGS (2)
  1. ENBREL [Suspect]
     Active Substance: ETANERCEPT
     Indication: PSORIASIS
     Dosage: 50 MG, QWK
     Route: 065
     Dates: start: 20021122
  2. ENBREL [Suspect]
     Active Substance: ETANERCEPT
     Indication: PSORIATIC ARTHROPATHY

REACTIONS (12)
  - Therapeutic response decreased [Not Recovered/Not Resolved]
  - Infected skin ulcer [Recovered/Resolved]
  - Pruritus [Unknown]
  - Impaired healing [Recovered/Resolved]
  - Joint stiffness [Not Recovered/Not Resolved]
  - Finger deformity [Not Recovered/Not Resolved]
  - Nerve root compression [Not Recovered/Not Resolved]
  - Precancerous cells present [Not Recovered/Not Resolved]
  - Procedural pain [Not Recovered/Not Resolved]
  - Onychoclasis [Not Recovered/Not Resolved]
  - Anaemia [Unknown]
  - Intervertebral disc protrusion [Not Recovered/Not Resolved]

NARRATIVE: CASE EVENT DATE: 2014
